FAERS Safety Report 14282095 (Version 3)
Quarter: 2018Q2

REPORT INFORMATION
  Report Type: Spontaneous
  Country: US (occurrence: US)
  Receive Date: 20171213
  Receipt Date: 20180627
  Transmission Date: 20180711
  Serious: No
  Sender: FDA-Public Use
  Company Number: US-PFIZER INC-2017526651

PATIENT
  Sex: Female
  Weight: 88.45 kg

DRUGS (12)
  1. LYRICA [Suspect]
     Active Substance: PREGABALIN
     Indication: FIBROMYALGIA
     Dosage: UNK
     Dates: start: 1999, end: 201410
  2. LYRICA [Suspect]
     Active Substance: PREGABALIN
     Dosage: 100 MG, 3X/DAY
     Dates: start: 2001
  3. EXCEDRIN MIGRAINE [Concomitant]
     Active Substance: ACETAMINOPHEN\ASPIRIN\CAFFEINE
     Indication: HEADACHE
     Dosage: UNK, AS NEEDED
  4. CYMBALTA [Concomitant]
     Active Substance: DULOXETINE HYDROCHLORIDE
     Dosage: 90 MG, DAILY
     Dates: start: 1999
  5. PRAVASTATIN SODIUM. [Concomitant]
     Active Substance: PRAVASTATIN SODIUM
     Indication: BLOOD CHOLESTEROL INCREASED
     Dosage: UNK
     Dates: start: 2014
  6. PRAVASTATIN SODIUM. [Concomitant]
     Active Substance: PRAVASTATIN SODIUM
     Dosage: 20 MG, DAILY
     Dates: start: 2016
  7. TYLENOL [Concomitant]
     Active Substance: ACETAMINOPHEN
     Indication: ARTHRALGIA
     Dosage: 6 DF, DAILY
     Dates: start: 2015
  8. NABUMETONE. [Concomitant]
     Active Substance: NABUMETONE
     Indication: ARTHRALGIA
     Dosage: 1000 MG, DAILY
     Dates: start: 2014
  9. METOPROLOL. [Concomitant]
     Active Substance: METOPROLOL
     Indication: BLOOD PRESSURE ABNORMAL
     Dosage: ONE AND A HALF TABLETS ONCE DAILY
     Dates: start: 2013
  10. OMEPRAZOLE. [Concomitant]
     Active Substance: OMEPRAZOLE
     Dosage: 20 MG, 1X/DAY
     Dates: start: 2014
  11. CYCLOBENZAPRINE. [Concomitant]
     Active Substance: CYCLOBENZAPRINE
     Indication: MUSCLE DISORDER
     Dosage: 5 MG, DAILY (AT BEDTIME)
     Dates: start: 2013
  12. CYMBALTA [Concomitant]
     Active Substance: DULOXETINE HYDROCHLORIDE
     Dosage: UNK
     Dates: start: 2001

REACTIONS (10)
  - Spinal osteoarthritis [Recovered/Resolved]
  - Sciatica [Unknown]
  - Headache [Recovered/Resolved]
  - Musculoskeletal disorder [Unknown]
  - Bursitis [Unknown]
  - Pain [Recovered/Resolved]
  - Malaise [Recovered/Resolved]
  - Intentional product misuse [Unknown]
  - Hypertension [Recovered/Resolved]
  - Dehydration [Recovered/Resolved]

NARRATIVE: CASE EVENT DATE: 201410
